FAERS Safety Report 4543723-6 (Version None)
Quarter: 2004Q4

REPORT INFORMATION
  Report Type: 
  Country: None (occurrence: None)
  Receive Date: 20041229
  Receipt Date: 20041229
  Transmission Date: 20050328
  Serious: Yes (Life-Threatening)
  Sender: FDA-Public Use
  Company Number: None

PATIENT
  Age: 43 Year
  Sex: Female
  Weight: 108.8633 kg

DRUGS (1)
  1. ROCEPHIN [Suspect]
     Indication: CELLULITIS
     Dosage: 1 GM IV X 1
     Route: 042
     Dates: start: 20041021

REACTIONS (2)
  - INFUSION SITE REACTION [None]
  - SKIN DISORDER [None]
